FAERS Safety Report 10964176 (Version 1)
Quarter: 2015Q1

REPORT INFORMATION
  Report Type: Report from Study
  Country: CA (occurrence: CA)
  Receive Date: 20150329
  Receipt Date: 20150329
  Transmission Date: 20150721
  Serious: Yes (Other)
  Sender: FDA-Public Use
  Company Number: PHHY2015CA036225

PATIENT
  Age: 48 Year
  Sex: Female
  Weight: 80 kg

DRUGS (5)
  1. LDK378 [Suspect]
     Active Substance: CERITINIB
     Indication: PRODUCT USED FOR UNKNOWN INDICATION
     Dosage: 750 MG, QD
     Route: 048
     Dates: start: 20150209, end: 20150316
  2. LDK378 [Suspect]
     Active Substance: CERITINIB
     Dosage: INCREASED DOSE
     Route: 048
  3. COLCHICIN [Concomitant]
     Active Substance: COLCHICINE
     Indication: PERICARDITIS
     Dosage: 0.6 MG, QD
     Route: 065
     Dates: start: 20150306
  4. PANTOLOC//PANTOPRAZOLE SODIUM SESQUIHYDRATE [Concomitant]
     Active Substance: PANTOPRAZOLE SODIUM
     Indication: GASTRIC DISORDER
     Dosage: 40 MG, QD
     Route: 065
     Dates: start: 20150306
  5. INDOCID [Concomitant]
     Active Substance: INDOMETHACIN
     Indication: INFLAMMATION
     Dosage: 50 MG, TID
     Route: 065
     Dates: start: 20150306, end: 20150312

REACTIONS (3)
  - Chest pain [Recovering/Resolving]
  - Pericarditis [Recovered/Resolved]
  - Electrocardiogram PR shortened [Recovering/Resolving]

NARRATIVE: CASE EVENT DATE: 20150304
